FAERS Safety Report 5478117-2 (Version None)
Quarter: 2007Q4

REPORT INFORMATION
  Report Type: 
  Country: None (occurrence: None)
  Receive Date: 20071005
  Receipt Date: 20071003
  Transmission Date: 20080405
  Serious: Yes (Other)
  Sender: FDA-Public Use
  Company Number: US-JNJFOC-20071000025

PATIENT
  Sex: Female
  Weight: 75.3 kg

DRUGS (11)
  1. ULTRAM ER [Suspect]
     Route: 048
  2. ULTRAM ER [Suspect]
     Indication: OSTEOARTHRITIS
     Route: 048
  3. MELOXICAM [Suspect]
  4. MELOXICAM [Suspect]
     Indication: OSTEOARTHRITIS
  5. BENAZEPRIL HYDROCHLORIDE [Concomitant]
     Route: 065
  6. CRESTOR [Concomitant]
     Route: 065
  7. ALPHAGAN [Concomitant]
     Route: 065
  8. NASONEX [Concomitant]
     Route: 065
  9. TRAVATAN [Concomitant]
     Route: 065
  10. MULTI-VITAMIN [Concomitant]
     Route: 065
  11. VITAMIN B-12 [Concomitant]
     Route: 065

REACTIONS (1)
  - TRANSIENT ISCHAEMIC ATTACK [None]
